FAERS Safety Report 14482726 (Version 1)
Quarter: 2018Q1

REPORT INFORMATION
  Report Type: Spontaneous
  Country: IT (occurrence: IT)
  Receive Date: 20180203
  Receipt Date: 20180203
  Transmission Date: 20180509
  Serious: Yes (Other)
  Sender: FDA-Public Use
  Company Number: IT-TEVA-2018-IT-851188

PATIENT
  Age: 48 Year
  Sex: Male

DRUGS (8)
  1. RIBAVIRIN. [Suspect]
     Active Substance: RIBAVIRIN
     Route: 065
     Dates: start: 20151014, end: 20151109
  2. KIVEXA 600 MG/300 MG FILM-COATED TABLETS [Concomitant]
  3. RIVOTRIL [Concomitant]
     Active Substance: CLONAZEPAM
  4. NORVIR [Concomitant]
     Active Substance: RITONAVIR
  5. HARVONI [Suspect]
     Active Substance: LEDIPASVIR\SOFOSBUVIR
     Indication: HEPATITIS C
     Route: 048
     Dates: start: 20151014, end: 20151109
  6. ATAZANAVIR. [Concomitant]
     Active Substance: ATAZANAVIR SULFATE
  7. TAVOR (LORAZEPAM) [Concomitant]
     Active Substance: LORAZEPAM
  8. METHADONE HYDROCHLORIDE. [Concomitant]
     Active Substance: METHADONE HYDROCHLORIDE

REACTIONS (3)
  - Psychomotor hyperactivity [Recovered/Resolved]
  - Hyperbilirubinaemia [Recovered/Resolved]
  - Depression [Recovered/Resolved]

NARRATIVE: CASE EVENT DATE: 20151109
